FAERS Safety Report 19642584 (Version 2)
Quarter: 2021Q3

REPORT INFORMATION
  Report Type: Spontaneous
  Country: US (occurrence: US)
  Receive Date: 20210730
  Receipt Date: 20210812
  Transmission Date: 20211014
  Serious: Yes (Death, Hospitalization, Other)
  Sender: FDA-Public Use
  Company Number: US-PFIZER INC-202100918901

PATIENT
  Age: 97 Year
  Sex: Female
  Weight: 52.15 kg

DRUGS (1)
  1. DETROL LA [Suspect]
     Active Substance: TOLTERODINE TARTRATE
     Dosage: 2 MG

REACTIONS (6)
  - Loss of consciousness [Unknown]
  - Eating disorder [Unknown]
  - Cardiac arrest [Fatal]
  - Asthenia [Unknown]
  - Gait inability [Unknown]
  - Weight decreased [Unknown]

NARRATIVE: CASE EVENT DATE: 20210330
